FAERS Safety Report 9709696 (Version 3)
Quarter: 2014Q2

REPORT INFORMATION
  Report Type: Report from Study
  Country: JP (occurrence: JP)
  Receive Date: 20131126
  Receipt Date: 20140516
  Transmission Date: 20141212
  Serious: Yes (Other)
  Sender: FDA-Public Use
  Company Number: PHHY2012JP064493

PATIENT
  Sex: 0
  Weight: 56 kg

DRUGS (19)
  1. LEPONEX / CLOZARIL [Suspect]
     Indication: SCHIZOPHRENIA, PARANOID TYPE
     Dosage: 12.5 MG, UNK
     Route: 048
     Dates: start: 20120215, end: 20120215
  2. LEPONEX / CLOZARIL [Suspect]
     Dosage: 25 MG, UNK
     Route: 048
     Dates: start: 20120216, end: 20120218
  3. LEPONEX / CLOZARIL [Suspect]
     Dosage: 50 MG, UNK
     Route: 048
     Dates: start: 20120219, end: 20120221
  4. LEPONEX / CLOZARIL [Suspect]
     Dosage: 75 MG, UNK
     Route: 048
     Dates: start: 20120222, end: 20120223
  5. LEPONEX / CLOZARIL [Suspect]
     Dosage: 100 MG, UNK
     Route: 048
     Dates: start: 20120224, end: 20120225
  6. LEPONEX / CLOZARIL [Suspect]
     Dosage: 125 MG, UNK
     Route: 048
     Dates: start: 20120226, end: 20120228
  7. LEPONEX / CLOZARIL [Suspect]
     Dosage: 150 MG, UNK
     Route: 048
     Dates: start: 20120229, end: 20120302
  8. LEPONEX / CLOZARIL [Suspect]
     Dosage: 175 MG, UNK
     Route: 048
     Dates: start: 20120303, end: 20120305
  9. LEPONEX / CLOZARIL [Suspect]
     Dosage: 200 MG, UNK
     Route: 048
     Dates: start: 20120306, end: 20120306
  10. LEPONEX / CLOZARIL [Suspect]
     Dosage: 250 MG, UNK
     Route: 048
     Dates: start: 20120307, end: 20120313
  11. LEPONEX / CLOZARIL [Suspect]
     Dosage: 275 MG, UNK
     Route: 048
     Dates: start: 20120314, end: 20120501
  12. LEPONEX / CLOZARIL [Suspect]
     Dosage: 250 MG, UNK
     Route: 048
     Dates: start: 20120502, end: 20120515
  13. LEPONEX / CLOZARIL [Suspect]
     Dosage: 225 MG, UNK
     Route: 048
     Dates: start: 20120516
  14. RISPERDAL [Concomitant]
     Dosage: 4 MG
     Route: 048
     Dates: start: 20081121
  15. RISPERDAL [Concomitant]
     Dosage: 3 MG
     Route: 048
  16. RISPERDAL [Concomitant]
     Dosage: 1 MG
     Route: 048
     Dates: end: 20120306
  17. LIMAS [Concomitant]
     Indication: SCHIZOPHRENIA, PARANOID TYPE
     Dosage: 100 MG
     Route: 048
     Dates: start: 20120207
  18. LEUCON [Concomitant]
     Indication: WHITE BLOOD CELL COUNT DECREASED
     Dosage: 20 MG, UNK
     Route: 048
     Dates: start: 20120918
  19. LEUCON [Concomitant]
     Dosage: 40 MG, UNK
     Route: 048

REACTIONS (7)
  - Hepatic function abnormal [Recovered/Resolved]
  - Pseudohyperkalaemia [Recovering/Resolving]
  - Weight increased [Not Recovered/Not Resolved]
  - Salivary hypersecretion [Not Recovered/Not Resolved]
  - Constipation [Not Recovered/Not Resolved]
  - Proteinuria [Unknown]
  - Heart rate increased [Unknown]
